FAERS Safety Report 6052217-0 (Version None)
Quarter: 2009Q1

REPORT INFORMATION
  Report Type: 
  Country: None (occurrence: None)
  Receive Date: 20090121
  Receipt Date: 20080922
  Transmission Date: 20090719
  Serious: Yes (Hospitalization)
  Sender: FDA-Public Use
  Company Number: 2009PL000008

PATIENT
  Age: 76 Year
  Sex: Male

DRUGS (7)
  1. ALLOPURINOL [Suspect]
     Indication: GOUT
     Dates: start: 20050101
  2. CLOPIDOGREL [Concomitant]
  3. HYDROCHLOROTHIAZIDE [Concomitant]
  4. VALSARTAN [Concomitant]
  5. ANTIBIOTIC (UNSPECIFIED) [Concomitant]
  6. AMPICILLINE [Concomitant]
  7. CORTICOIDS (UNSPECIFIED) [Concomitant]

REACTIONS (13)
  - ANOREXIA [None]
  - ASTHENIA [None]
  - CHOLESTASIS [None]
  - COUGH [None]
  - DISCOMFORT [None]
  - DISORIENTATION [None]
  - DRUG RASH WITH EOSINOPHILIA AND SYSTEMIC SYMPTOMS [None]
  - DYSPNOEA [None]
  - ENTEROCOCCAL INFECTION [None]
  - HYPOTENSION [None]
  - LOSS OF CONSCIOUSNESS [None]
  - MYALGIA [None]
  - RENAL FAILURE [None]
